FAERS Safety Report 25900870 (Version 1)
Quarter: 2025Q4

REPORT INFORMATION
  Report Type: Spontaneous
  Country: US (occurrence: None)
  Receive Date: 20251008
  Receipt Date: 20251008
  Transmission Date: 20260117
  Serious: Yes (Life-Threatening, Hospitalization, Other)
  Sender: FDA-CTU
  Company Number: None

PATIENT
  Age: 27 Year
  Sex: Female
  Weight: 52.65 kg

DRUGS (1)
  1. TEA [Suspect]
     Active Substance: TEA LEAF
     Indication: Therapeutic skin care topical
     Dosage: 6 ONCE(S) TOPICAL?
     Route: 061
     Dates: start: 20250116, end: 20250116

REACTIONS (6)
  - Product formulation issue [None]
  - Product advertising issue [None]
  - Anaphylactic reaction [None]
  - Bedridden [None]
  - Emotional distress [None]
  - Product label counterfeit [None]

NARRATIVE: CASE EVENT DATE: 20250116
